FAERS Safety Report 11988159 (Version 2)
Quarter: 2016Q1

REPORT INFORMATION
  Report Type: Spontaneous
  Country: US (occurrence: US)
  Receive Date: 20160202
  Receipt Date: 20160314
  Transmission Date: 20160526
  Serious: Yes (Other)
  Sender: FDA-Public Use
  Company Number: US-BEH-2016058195

PATIENT
  Sex: Female
  Weight: 76 kg

DRUGS (18)
  1. XOPENEX [Concomitant]
     Active Substance: LEVALBUTEROL HYDROCHLORIDE
  2. PSEUDOPHEDRINE [Concomitant]
     Active Substance: PSEUDOEPHEDRINE
  3. OXYGEN. [Concomitant]
     Active Substance: OXYGEN
  4. FLONASE [Concomitant]
     Active Substance: FLUTICASONE PROPIONATE
  5. DIPHENHYDRAMINE. [Concomitant]
     Active Substance: DIPHENHYDRAMINE
  6. IBUPROFEN. [Concomitant]
     Active Substance: IBUPROFEN
  7. EPIPEN [Concomitant]
     Active Substance: EPINEPHRINE
  8. VITAMIN D [Concomitant]
     Active Substance: CHOLECALCIFEROL
  9. ASPIRIN. [Concomitant]
     Active Substance: ASPIRIN
  10. ZOLOFT [Concomitant]
     Active Substance: SERTRALINE HYDROCHLORIDE
  11. CALCIUM [Concomitant]
     Active Substance: CALCIUM
  12. ZEMAIRA [Suspect]
     Active Substance: .ALPHA.1-PROTEINASE INHIBITOR HUMAN
     Route: 042
     Dates: start: 20130530
  13. LIDOCAINE/PRILOCAINE [Concomitant]
  14. SODIUM CHLORIDE. [Concomitant]
     Active Substance: SODIUM CHLORIDE
  15. MULTIPLE VITAMIN [Concomitant]
     Active Substance: VITAMINS
  16. CHLORHEXIDINE [Concomitant]
     Active Substance: CHLORHEXIDINE
  17. HYDROCODONE [Concomitant]
     Active Substance: HYDROCODONE
  18. IBUPROFEN. [Concomitant]
     Active Substance: IBUPROFEN

REACTIONS (1)
  - Pneumonia [Recovered/Resolved with Sequelae]

NARRATIVE: CASE EVENT DATE: 2016
